FAERS Safety Report 16329088 (Version 1)
Quarter: 2019Q2

REPORT INFORMATION
  Report Type: Report from Study
  Country: None (occurrence: GB)
  Receive Date: 20190519
  Receipt Date: 20190519
  Transmission Date: 20190711
  Serious: Yes (Hospitalization, Other)
  Sender: FDA-Public Use
  Company Number: GB-ABBVIE-19K-167-2782572-00

PATIENT
  Sex: Female

DRUGS (1)
  1. HUMIRA [Suspect]
     Active Substance: ADALIMUMAB
     Indication: CROHN^S DISEASE
     Route: 058
     Dates: start: 20180411

REACTIONS (11)
  - Cerebral cyst [Unknown]
  - Abdominal wall wound [Unknown]
  - Shock [Unknown]
  - Cerebral haemorrhage [Unknown]
  - Face injury [Unknown]
  - Haemorrhage [Unknown]
  - Pelvic fracture [Unknown]
  - Fall [Unknown]
  - Intra-abdominal fluid collection [Unknown]
  - Cerebrovascular accident [Unknown]
  - Syncope [Unknown]
